FAERS Safety Report 16674541 (Version 1)
Quarter: 2019Q3

REPORT INFORMATION
  Report Type: Spontaneous
  Country: US (occurrence: US)
  Receive Date: 20190806
  Receipt Date: 20190806
  Transmission Date: 20191004
  Serious: No
  Sender: FDA-Public Use
  Company Number: US-BAUSCH-BL-2019-020881

PATIENT
  Age: 71 Year
  Sex: Female
  Weight: 49.94 kg

DRUGS (1)
  1. LUMIFY [Suspect]
     Active Substance: BRIMONIDINE TARTRATE
     Indication: OCULAR HYPERAEMIA
     Dosage: 1 DROP IN EACH EYE AS NEEDED
     Route: 047
     Dates: start: 201806, end: 20190718

REACTIONS (2)
  - Product container issue [Unknown]
  - Therapeutic product effect incomplete [Unknown]
